FAERS Safety Report 7368482-3 (Version None)
Quarter: 2011Q1

REPORT INFORMATION
  Report Type: 
  Country: None (occurrence: None)
  Receive Date: 20110308
  Receipt Date: 20110303
  Transmission Date: 20110831
  Serious: Yes (Death)
  Sender: FDA-Public Use
  Company Number: 2011SP009727

PATIENT
  Age: 44 Year
  Sex: Male

DRUGS (1)
  1. PEGATRON (PEGYLATED INTERFERON ALFA-2B W/ RIBAVIRIN) [Suspect]
     Indication: HEPATITIS C
     Dates: start: 20100811

REACTIONS (6)
  - INFLUENZA LIKE ILLNESS [None]
  - RASH [None]
  - EPISTAXIS [None]
  - FATIGUE [None]
  - DRY SKIN [None]
  - PRURITUS [None]
